FAERS Safety Report 8247644-7 (Version None)
Quarter: 2012Q1

REPORT INFORMATION
  Report Type: 
  Country: None (occurrence: None)
  Receive Date: 20120330
  Receipt Date: 20120326
  Transmission Date: 20120608
  Serious: Yes (Hospitalization, Disabling, Other)
  Sender: FDA-Public Use
  Company Number: US-BAYER-2011-051285

PATIENT
  Age: 50 Year
  Sex: Female
  Weight: 73 kg

DRUGS (17)
  1. YAZ [Suspect]
     Indication: ACNE
  2. DIPHENHYDRAMIN HCL [Concomitant]
     Dosage: 2 TABLETS NIGHTLY
     Route: 048
  3. YAZ [Suspect]
     Indication: CONTRACEPTION
     Dosage: UNK
     Dates: start: 20080201, end: 20080501
  4. DROSPIRENONE AND ETHINYL ESTRADIOL [Suspect]
     Indication: PREMENSTRUAL SYNDROME
  5. YASMIN [Suspect]
     Indication: CONTRACEPTION
     Dosage: UNK
     Dates: start: 20011001, end: 20080201
  6. YASMIN [Suspect]
     Indication: ACNE
  7. YAZ [Suspect]
     Indication: PREMENSTRUAL SYNDROME
  8. DROSPIRENONE AND ETHINYL ESTRADIOL [Suspect]
     Indication: CONTRACEPTION
     Dosage: UNK
     Dates: start: 20080701, end: 20100211
  9. CETIRIZINE HCL [Concomitant]
     Dosage: 1 TABLET NIGHTLY
     Route: 048
  10. IMITREX [Concomitant]
     Dosage: ONE TABLET, PRN
     Route: 048
     Dates: start: 20080101
  11. MOMETASONE FUROATE [Concomitant]
     Dosage: 0.1 %, BID
     Route: 061
     Dates: start: 20100202
  12. YASMIN [Suspect]
     Indication: PREMENSTRUAL SYNDROME
  13. DROSPIRENONE AND ETHINYL ESTRADIOL [Suspect]
     Indication: ACNE
  14. SUMATRIPTAN [Concomitant]
     Dosage: 1 TABLET WITH HEADACHE
     Route: 048
     Dates: start: 20091001, end: 20110101
  15. MELATONIN [Concomitant]
     Dosage: 3 MG, NIGHTLY
     Route: 048
  16. ZYRTEC [Concomitant]
  17. HYPNOTICS AND SEDATIVES [Concomitant]

REACTIONS (7)
  - GALLBLADDER DISORDER [None]
  - PULMONARY INFARCTION [None]
  - PAIN [None]
  - CHOLELITHIASIS [None]
  - EMOTIONAL DISTRESS [None]
  - PULMONARY EMBOLISM [None]
  - CHOLECYSTITIS CHRONIC [None]
